FAERS Safety Report 8206131-2 (Version None)
Quarter: 2012Q1

REPORT INFORMATION
  Report Type: 
  Country: None (occurrence: None)
  Receive Date: 20120313
  Receipt Date: 20120227
  Transmission Date: 20120608
  Serious: Yes (Other)
  Sender: FDA-Public Use
  Company Number: US-WATSON-2012-04075

PATIENT
  Age: 53 Year
  Sex: Female

DRUGS (3)
  1. HYDROXYCHLOROQUINE SULFATE [Suspect]
     Indication: ARTHRITIS
     Route: 065
  2. PREDNISONE TAB [Suspect]
     Indication: ARTHRITIS
     Route: 065
  3. METHOTREXATE [Suspect]

REACTIONS (3)
  - GASTROOESOPHAGEAL REFLUX DISEASE [None]
  - ALOPECIA [None]
  - PHOTOSENSITIVITY REACTION [None]
